FAERS Safety Report 5743041-4 (Version None)
Quarter: 2008Q2

REPORT INFORMATION
  Report Type: 
  Country: None (occurrence: None)
  Receive Date: 20080513
  Receipt Date: 20080220
  Transmission Date: 20081010
  Serious: Yes (Other)
  Sender: FDA-Public Use
  Company Number: 200811118US

PATIENT
  Age: 74 Year
  Sex: Female

DRUGS (4)
  1. APIDRA [Suspect]
     Indication: TYPE 1 DIABETES MELLITUS
  2. OPTICLIK GREY [Suspect]
     Indication: TYPE 1 DIABETES MELLITUS
  3. LANTUS [Suspect]
     Indication: TYPE 1 DIABETES MELLITUS
  4. OPTICLIK [Suspect]
     Indication: TYPE 1 DIABETES MELLITUS

REACTIONS (1)
  - HYPOGLYCAEMIA [None]
